FAERS Safety Report 5330461-5 (Version None)
Quarter: 2007Q2

REPORT INFORMATION
  Report Type: 
  Country: None (occurrence: None)
  Receive Date: 20070515
  Receipt Date: 20070501
  Transmission Date: 20071010
  Serious: Yes (Hospitalization)
  Sender: FDA-Public Use
  Company Number: 230009M06AUS

PATIENT
  Age: 71 Year
  Sex: Male

DRUGS (10)
  1. REBIF [Suspect]
     Indication: RELAPSING-REMITTING MULTIPLE SCLEROSIS
     Dosage: 44 MCG, 3 IN 1 WEEKS, SUBCUTANEOUS
     Route: 058
     Dates: start: 20060410
  2. LISINOPRIL/00894001/ [Concomitant]
  3. TIOTROPIUM BROMIDE (TIOTROPIUM BROMIDE) [Concomitant]
  4. GLICLAZIDE [Concomitant]
  5. METFORMIN HCL [Concomitant]
  6. CITALOPRAM HYDROBROMIDE [Concomitant]
  7. POTASSIUM CHLORIDE [Concomitant]
  8. RANITIDINE [Concomitant]
  9. BUDESONIDE W/FORMOTEROL FUMARATE [Concomitant]
  10. METOCLOPRAMIDE [Concomitant]

REACTIONS (13)
  - APHASIA [None]
  - BEDRIDDEN [None]
  - DRUG INEFFECTIVE [None]
  - FAECAL INCONTINENCE [None]
  - FALL [None]
  - MOBILITY DECREASED [None]
  - MULTIPLE SCLEROSIS RELAPSE [None]
  - MUSCLE CONTRACTURE [None]
  - PNEUMONIA [None]
  - SECONDARY PROGRESSIVE MULTIPLE SCLEROSIS [None]
  - SYNCOPE [None]
  - URINARY INCONTINENCE [None]
  - URINARY TRACT INFECTION [None]
